FAERS Safety Report 9435270 (Version 1)
Quarter: 2013Q3

REPORT INFORMATION
  Report Type: Spontaneous
  Country: US (occurrence: US)
  Receive Date: 20130801
  Receipt Date: 20130801
  Transmission Date: 20140515
  Serious: No
  Sender: FDA-Public Use
  Company Number: US-BAUSCH-BL-2013-002366

PATIENT
  Age: 59 Year
  Sex: Female
  Weight: 81.72 kg

DRUGS (2)
  1. LOTEPREDNOL ETABONATE OPHTHALMIC OINTMENT 0.5% [Suspect]
     Indication: DERMATITIS
     Dosage: 1 RIBBON; TWICE DAILY; LEFT EYE
     Route: 047
     Dates: start: 20130422
  2. TEKTURNA [Concomitant]
     Indication: HYPERTENSION

REACTIONS (2)
  - Off label use [Not Recovered/Not Resolved]
  - Headache [Recovering/Resolving]
